FAERS Safety Report 5594286-8 (Version None)
Quarter: 2008Q1

REPORT INFORMATION
  Report Type: 
  Country: None (occurrence: None)
  Receive Date: 20080117
  Receipt Date: 20080115
  Transmission Date: 20080703
  Serious: Yes (Death, Life-Threatening, Hospitalization)
  Sender: FDA-Public Use
  Company Number: PHBS2005DK13622

PATIENT
  Age: 39 Year
  Sex: Female

DRUGS (4)
  1. ANAFRANIL [Suspect]
     Dosage: 75 MG, BID
  2. TRUXAL [Concomitant]
     Dosage: UNK, PRN
  3. LEPONEX [Suspect]
     Indication: SCHIZOPHRENIA
     Dosage: 400 MG, QD
     Route: 048
     Dates: start: 19970101, end: 20040101
  4. MIANSERIN [Suspect]

REACTIONS (7)
  - CARDIAC FAILURE [None]
  - CARDIOMYOPATHY [None]
  - CHEST PAIN [None]
  - DRUG TOXICITY [None]
  - EJECTION FRACTION DECREASED [None]
  - ELECTROCARDIOGRAM ABNORMAL [None]
  - JOINT SWELLING [None]
